FAERS Safety Report 8395531-6 (Version None)
Quarter: 2012Q2

REPORT INFORMATION
  Report Type: 
  Country: None (occurrence: None)
  Receive Date: 20120530
  Receipt Date: 20110614
  Transmission Date: 20120825
  Serious: No
  Sender: FDA-Public Use
  Company Number: US-GLAXOSMITHKLINE-A0931487A

PATIENT
  Age: 12 Year
  Sex: Male

DRUGS (2)
  1. ALAVERT [Concomitant]
  2. ALBUTEROL [Suspect]
     Indication: PRODUCT USED FOR UNKNOWN INDICATION
     Route: 061
     Dates: start: 20110614

REACTIONS (2)
  - SKIN DISCOLOURATION [None]
  - OEDEMA PERIPHERAL [None]
